FAERS Safety Report 24383028 (Version 3)
Quarter: 2024Q4

REPORT INFORMATION
  Report Type: Spontaneous
  Country: CN (occurrence: CN)
  Receive Date: 20241001
  Receipt Date: 20241023
  Transmission Date: 20250114
  Serious: Yes (Other)
  Sender: PFIZER
  Company Number: CN-PFIZER INC-PV202400125731

PATIENT
  Age: 53 Year
  Weight: 45 kg

DRUGS (3)
  1. PACLITAXEL [Suspect]
     Active Substance: PACLITAXEL
     Indication: Ovarian cancer
     Dosage: 240 MG, CYCLIC (3-WEEK CYCLE LENGTH FOR A TOTAL OF 6 CYCLES)
     Route: 042
  2. PACLITAXEL [Suspect]
     Active Substance: PACLITAXEL
     Dosage: 180 MG  (135 MG/M2) SECOND CYCLE
  3. CARBOPLATIN [Concomitant]
     Active Substance: CARBOPLATIN
     Indication: Ovarian cancer
     Dosage: 474 MG (175 MG/M2 ) ON DAY 1 WITH A 3-WEEK CYCLE LENGTH FOR A TOTAL OF 6 CYCLES., CYCLIC

REACTIONS (1)
  - Drug-induced liver injury [Recovering/Resolving]
